FAERS Safety Report 7393947-8 (Version None)
Quarter: 2011Q2

REPORT INFORMATION
  Report Type: 
  Country: None (occurrence: None)
  Receive Date: 20110405
  Receipt Date: 20100329
  Transmission Date: 20111010
  Serious: No
  Sender: FDA-Public Use
  Company Number: US-AMGEN-KDL402521

PATIENT
  Sex: Female

DRUGS (4)
  1. PACLITAXEL [Concomitant]
     Dosage: UNK UNK, UNK
  2. CARBOPLATIN [Concomitant]
     Dosage: UNK UNK, UNK
  3. NEULASTA [Suspect]
     Indication: CHEMOTHERAPY
     Dosage: UNK UNK, UNK
     Dates: start: 20100226
  4. BEVACIZUMAB [Concomitant]
     Dosage: UNK UNK, UNK

REACTIONS (1)
  - DRUG INEFFECTIVE [None]
